FAERS Safety Report 8621599-5 (Version None)
Quarter: 2012Q3

REPORT INFORMATION
  Report Type: 
  Country: None (occurrence: None)
  Receive Date: 20120820
  Receipt Date: 20120820
  Transmission Date: 20120928
  Serious: No
  Sender: FDA-Public Use
  Company Number: None

PATIENT
  Sex: Female

DRUGS (1)
  1. FORTEO [Suspect]
     Indication: OSTEOPOROSIS
     Dosage: 20 MCG, DAILY, SQ
     Dates: start: 20120601, end: 20120801

REACTIONS (5)
  - INFLUENZA [None]
  - HYPERHIDROSIS [None]
  - GASTROINTESTINAL DISORDER [None]
  - DYSPEPSIA [None]
  - PAIN [None]
